FAERS Safety Report 13725478 (Version 1)
Quarter: 2017Q3

REPORT INFORMATION
  Report Type: Spontaneous
  Country: US (occurrence: US)
  Receive Date: 20170706
  Receipt Date: 20170706
  Transmission Date: 20171127
  Serious: Yes (Other)
  Sender: FDA-Public Use
  Company Number: None

PATIENT
  Age: 60 Year
  Sex: Male
  Weight: 101.2 kg

DRUGS (8)
  1. METFORMIN HCL 500 MG TABLET [Suspect]
     Active Substance: METFORMIN HYDROCHLORIDE
     Indication: TYPE 2 DIABETES MELLITUS
     Dosage: ?          OTHER STRENGTH:MG;QUANTITY:60 TABLET(S);?
     Route: 048
     Dates: start: 20140207
  2. COD LIVER OIL [Concomitant]
     Active Substance: COD LIVER OIL
  3. GENERIC FISH OILS [Concomitant]
  4. MILK THISTLE [Concomitant]
     Active Substance: MILK THISTLE
  5. CINNAMON POWDER [Concomitant]
  6. FLAXSEED [Concomitant]
     Active Substance: FLAX SEED
  7. MULTI VITAMIN [Concomitant]
     Active Substance: VITAMINS
  8. BABY ASPIRIN [Concomitant]
     Active Substance: ASPIRIN

REACTIONS (4)
  - Oedema [None]
  - Oedema peripheral [None]
  - Respiratory disorder [None]
  - Chest pain [None]

NARRATIVE: CASE EVENT DATE: 20170201
